FAERS Safety Report 9448634 (Version 2)
Quarter: 2014Q2

REPORT INFORMATION
  Report Type: Spontaneous
  Country: JP (occurrence: JP)
  Receive Date: 20130808
  Receipt Date: 20140402
  Transmission Date: 20141212
  Serious: Yes (Other)
  Sender: FDA-Public Use
  Company Number: PHHY2013JP082872

PATIENT
  Age: 9 Year
  Sex: Male

DRUGS (11)
  1. CICLOSPORIN [Suspect]
     Indication: APLASTIC ANAEMIA
  2. METHOTREXATE [Suspect]
     Indication: PROPHYLAXIS AGAINST GRAFT VERSUS HOST DISEASE
     Dosage: 7 MG/M2, UNK
  3. MELPHALAN [Suspect]
     Indication: SURGICAL PRECONDITIONING
     Dosage: 71 MG/M2/D FOR 2 D
  4. PREDNISOLONE [Suspect]
     Dosage: 2 MG/KG, PER DAY
  5. TACROLIMUS [Suspect]
     Indication: PROPHYLAXIS AGAINST GRAFT VERSUS HOST DISEASE
  6. ANTITHYMOCYTE IMMUNOGLOBULIN (HORSE) [Suspect]
  7. METHYLPREDNISOLONE [Concomitant]
  8. FLUDARABINE [Concomitant]
     Indication: SURGICAL PRECONDITIONING
     Dosage: 26 MG/M2/D FOR 5 D
  9. ANTITHYMOCYTE IMMUNOGLOBULIN (RABBIT) [Concomitant]
     Indication: SURGICAL PRECONDITIONING
     Dosage: 2.31 MG/KG/D FOR 2 D
  10. THROMBOMODULIN ALFA [Concomitant]
     Indication: THROMBOTIC MICROANGIOPATHY
  11. DIAZEPAM [Concomitant]

REACTIONS (21)
  - Mental disability [Unknown]
  - Mental retardation [Unknown]
  - Graft versus host disease in gastrointestinal tract [Recovered/Resolved]
  - Abdominal pain [Unknown]
  - Diarrhoea [Recovering/Resolving]
  - Graft versus host disease in skin [Recovered/Resolved]
  - Rash [Recovering/Resolving]
  - Graft versus host disease in liver [Recovered/Resolved]
  - Gamma-glutamyltransferase increased [Unknown]
  - Blood bilirubin increased [Unknown]
  - Hepatic function abnormal [Recovering/Resolving]
  - Leukoencephalopathy [Unknown]
  - Posterior reversible encephalopathy syndrome [Unknown]
  - Respiratory depression [Unknown]
  - Convulsion [Unknown]
  - Loss of consciousness [Unknown]
  - Cerebral atrophy [Unknown]
  - Headache [Recovering/Resolving]
  - Status epilepticus [Unknown]
  - Toxic encephalopathy [Unknown]
  - Treatment failure [Unknown]
